FAERS Safety Report 19962817 (Version 1)
Quarter: 2021Q4

REPORT INFORMATION
  Report Type: Spontaneous
  Country: US (occurrence: US)
  Receive Date: 20211015
  Receipt Date: 20211015
  Transmission Date: 20220303
  Serious: Yes (Hospitalization)
  Sender: FDA-Public Use
  Company Number: None

PATIENT
  Age: 60 Year
  Sex: Female
  Weight: 79.5 kg

DRUGS (1)
  1. REGEN-COV [Suspect]
     Active Substance: CASIRIVIMAB\IMDEVIMAB
     Indication: COVID-19
     Dosage: ?          OTHER FREQUENCY:ONCE;
     Route: 042
     Dates: start: 20211014, end: 20211014

REACTIONS (7)
  - Infusion related reaction [None]
  - Rash [None]
  - Flushing [None]
  - Back pain [None]
  - Dyspnoea [None]
  - Rash [None]
  - Rash [None]

NARRATIVE: CASE EVENT DATE: 20211015
